FAERS Safety Report 4754761-2 (Version None)
Quarter: 2005Q3

REPORT INFORMATION
  Report Type: 
  Country: None (occurrence: None)
  Receive Date: 20050829
  Receipt Date: 20050822
  Transmission Date: 20060218
  Serious: Yes (Death)
  Sender: FDA-Public Use
  Company Number: PHBS2005PH12198

PATIENT
  Age: 34 Year
  Sex: Female

DRUGS (2)
  1. CATAFLAM [Suspect]
     Indication: BACK PAIN
     Dosage: 50 MG/DAY
     Route: 048
  2. MYONAL [Concomitant]

REACTIONS (5)
  - HYPOTENSION [None]
  - OEDEMA [None]
  - PYREXIA [None]
  - SEPTIC SHOCK [None]
  - URINARY TRACT INFECTION [None]
